FAERS Safety Report 7247743-2 (Version None)
Quarter: 2011Q1

REPORT INFORMATION
  Report Type: 
  Country: None (occurrence: None)
  Receive Date: 20110127
  Receipt Date: 20110120
  Transmission Date: 20110831
  Serious: Yes (Hospitalization)
  Sender: FDA-Public Use
  Company Number: GB-B.I. PHARMACEUTICALS,INC./RIDGEFIELD-2010-UK-00973UK

PATIENT
  Sex: Female

DRUGS (1)
  1. SPIRIVA [Suspect]
     Dosage: PATIENT SWALLOWED 4 OR MORE CAPSULES.
     Route: 048

REACTIONS (3)
  - MEDICATION ERROR [None]
  - AGITATION [None]
  - HEART RATE INCREASED [None]
